FAERS Safety Report 4831857-8 (Version None)
Quarter: 2005Q4

REPORT INFORMATION
  Report Type: 
  Country: None (occurrence: None)
  Receive Date: 20051116
  Receipt Date: 20051107
  Transmission Date: 20060501
  Serious: Yes (Other)
  Sender: FDA-Public Use
  Company Number: 2005US001617

PATIENT
  Age: 30 Year
  Sex: Male

DRUGS (11)
  1. AMBISOME [Suspect]
     Indication: BACTERIAL INFECTION
     Dosage: 250.00 MG, UID/QD, IV NOS
     Route: 042
     Dates: start: 20051018
  2. ASPIRIN [Concomitant]
  3. TEMAZEPAM [Concomitant]
  4. DIAZEPAM [Concomitant]
  5. METOPROLOL [Concomitant]
  6. DIGOXIN [Concomitant]
  7. FERROUS SULFATE TAB [Concomitant]
  8. TRANDOLAPRIL [Concomitant]
  9. MEROPENEM [Concomitant]
  10. GENTAMICIN [Concomitant]
  11. VANCOMYCIN [Concomitant]

REACTIONS (3)
  - FLANK PAIN [None]
  - INFUSION RELATED REACTION [None]
  - RENAL PAIN [None]
